FAERS Safety Report 23588471 (Version 1)
Quarter: 2024Q1

REPORT INFORMATION
  Report Type: Spontaneous
  Country: CA (occurrence: CA)
  Receive Date: 20240302
  Receipt Date: 20240302
  Transmission Date: 20240410
  Serious: Yes (Other)
  Sender: FDA-Public Use
  Company Number: None

PATIENT
  Age: 79 Year
  Sex: Female

DRUGS (4)
  1. METHOTREXATE [Suspect]
     Active Substance: METHOTREXATE
     Indication: Rheumatoid arthritis
     Route: 065
  2. ADALIMUMAB [Concomitant]
     Active Substance: ADALIMUMAB\ISOPROPYL ALCOHOL
  3. TRAMADOL [Concomitant]
     Active Substance: TRAMADOL\TRAMADOL HYDROCHLORIDE
  4. TYLENOL [Concomitant]
     Active Substance: ACETAMINOPHEN
     Indication: Arthritis

REACTIONS (2)
  - Back disorder [Unknown]
  - Hypertension [Unknown]
